FAERS Safety Report 5613785-3 (Version None)
Quarter: 2008Q1

REPORT INFORMATION
  Report Type: 
  Country: None (occurrence: None)
  Receive Date: 20080130
  Receipt Date: 20080114
  Transmission Date: 20080703
  Serious: Yes (Death)
  Sender: FDA-Public Use
  Company Number: 2008S1000074

PATIENT
  Age: 20 Year
  Sex: Male

DRUGS (7)
  1. ROXICODONE [Suspect]
     Dates: end: 20060101
  2. CARISOPRODOL [Suspect]
     Dates: end: 20060101
  3. HYDROCODONE BITARTRATE [Suspect]
     Dates: end: 20060101
  4. WARFARIN SODIUM [Suspect]
     Dates: end: 20060101
  5. PREGABALIN [Suspect]
     Dates: end: 20060101
  6. DIPHENHYDRAMINE HCL [Suspect]
     Dates: end: 20060101
  7. IBUPROFEN [Suspect]
     Dates: end: 20060101

REACTIONS (2)
  - CARDIAC ARREST [None]
  - RESPIRATORY ARREST [None]
